FAERS Safety Report 24636781 (Version 2)
Quarter: 2024Q4

REPORT INFORMATION
  Report Type: Report from Study
  Country: CA (occurrence: CA)
  Receive Date: 20241119
  Receipt Date: 20241126
  Transmission Date: 20250115
  Serious: Yes (Death)
  Sender: BAYER HEALTHCARE PHARMACEUTICALS INC.
  Company Number: CA-BAYER-2024A163100

PATIENT
  Age: 87 Year
  Sex: Female

DRUGS (11)
  1. ADEMPAS [Suspect]
     Active Substance: RIOCIGUAT
     Indication: Pulmonary hypertension
     Dosage: UNK
     Route: 048
     Dates: start: 20170728
  2. ADEMPAS [Suspect]
     Active Substance: RIOCIGUAT
     Indication: Pulmonary hypertension
     Dosage: 2.5 MG, TID
     Dates: end: 20241109
  3. ADEMPAS [Suspect]
     Active Substance: RIOCIGUAT
     Indication: Pulmonary hypertension
     Dosage: UNK
     Route: 048
     Dates: start: 2018
  4. RABEPRAZOLE [Concomitant]
     Active Substance: RABEPRAZOLE
  5. PREGABALIN [Concomitant]
     Active Substance: PREGABALIN
  6. DETROL [Concomitant]
     Active Substance: TOLTERODINE TARTRATE
  7. RIVAROXABAN [Concomitant]
     Active Substance: RIVAROXABAN
  8. LISINOPRIL [Concomitant]
     Active Substance: LISINOPRIL
  9. SYNTHROID [Concomitant]
     Active Substance: LEVOTHYROXINE SODIUM
  10. VITAMINS [Concomitant]
     Active Substance: VITAMINS
  11. MAGNESIUM [Concomitant]
     Active Substance: MAGNESIUM

REACTIONS (1)
  - Death [Fatal]

NARRATIVE: CASE EVENT DATE: 20241109
